FAERS Safety Report 5286576-3 (Version None)
Quarter: 2007Q2

REPORT INFORMATION
  Report Type: 
  Country: None (occurrence: None)
  Receive Date: 20070404
  Receipt Date: 20070323
  Transmission Date: 20071010
  Serious: Yes (Death)
  Sender: FDA-Public Use
  Company Number: JP-BRISTOL-MYERS SQUIBB COMPANY-13729785

PATIENT
  Age: 60 Year
  Sex: Male

DRUGS (4)
  1. SINEMET [Suspect]
     Indication: PARKINSON'S DISEASE
     Route: 048
     Dates: start: 20070118, end: 20070201
  2. ITRACONAZOLE [Concomitant]
  3. VFEND [Concomitant]
  4. BIAPENEM [Concomitant]

REACTIONS (3)
  - JAUNDICE [None]
  - LIVER DISORDER [None]
  - PNEUMONIA [None]
